FAERS Safety Report 7413065-X (Version None)
Quarter: 2011Q2

REPORT INFORMATION
  Report Type: 
  Country: None (occurrence: None)
  Receive Date: 20110408
  Receipt Date: 20110408
  Transmission Date: 20111010
  Serious: Yes (Hospitalization)
  Sender: FDA-Public Use
  Company Number: None

PATIENT
  Sex: Female

DRUGS (1)
  1. NAUZENE LIQUID, ALVA-AMCO PHARMACAL COS., INC. 4.35G GLUCOSE, 4.17G LE [Suspect]
     Indication: NAUSEA
     Dosage: ORAL ONE DOSE
     Route: 048

REACTIONS (2)
  - BLOOD GLUCOSE INCREASED [None]
  - SWOLLEN TONGUE [None]
